FAERS Safety Report 23808300 (Version 1)
Quarter: 2024Q2

REPORT INFORMATION
  Report Type: Report from Study
  Country: TW (occurrence: TW)
  Receive Date: 20240502
  Receipt Date: 20240502
  Transmission Date: 20240716
  Serious: Yes (Other)
  Sender: FDA-Public Use
  Company Number: TW-GILEAD-2024-0671049

PATIENT
  Age: 53 Year
  Sex: Female

DRUGS (1)
  1. EMTRICITABINE\TENOFOVIR DISOPROXIL FUMARATE [Suspect]
     Active Substance: EMTRICITABINE\TENOFOVIR DISOPROXIL FUMARATE
     Indication: Prophylaxis against HIV infection
     Dosage: 1 DOSAGE FORM, QD
     Route: 048
     Dates: start: 20240419

REACTIONS (7)
  - Bipolar disorder [Unknown]
  - Headache [Unknown]
  - Myalgia [Unknown]
  - Burnout syndrome [Unknown]
  - Fatigue [Unknown]
  - Anxiety [Unknown]
  - Anger [Unknown]

NARRATIVE: CASE EVENT DATE: 20240421
